FAERS Safety Report 7501007-8 (Version None)
Quarter: 2011Q2

REPORT INFORMATION
  Report Type: 
  Country: None (occurrence: None)
  Receive Date: 20110524
  Receipt Date: 20100519
  Transmission Date: 20111010
  Serious: No
  Sender: FDA-Public Use
  Company Number: US-NOVEN-ALL1-2010-02926

PATIENT

DRUGS (4)
  1. DAYTRANA [Suspect]
     Dosage: 10 MG, 1X/DAY:QD
     Route: 062
     Dates: start: 20090101, end: 20090101
  2. DAYTRANA [Suspect]
     Dosage: UNK MG, 1X/DAY:QD (APPLIED AND WORE ONE 10MG PATCH WITH 1/2 OF ANOTHER 10MG PATCH )
     Route: 062
  3. DAYTRANA [Suspect]
     Dosage: UNK MG, 1X/DAY:QD (CUT PART OF A 15 MG PATCH)
     Route: 062
  4. DAYTRANA [Suspect]
     Dosage: 15 MG, 1X/DAY:QD
     Route: 062
     Dates: start: 20090101

REACTIONS (5)
  - INCORRECT DRUG ADMINISTRATION DURATION [None]
  - WRONG TECHNIQUE IN DRUG USAGE PROCESS [None]
  - FLAT AFFECT [None]
  - APPLICATION SITE PAIN [None]
  - APPLICATION SITE IRRITATION [None]
